FAERS Safety Report 12238289 (Version 3)
Quarter: 2016Q2

REPORT INFORMATION
  Report Type: Report from Study
  Country: US (occurrence: US)
  Receive Date: 20160405
  Receipt Date: 20160613
  Transmission Date: 20160815
  Serious: Yes (Hospitalization, Other)
  Sender: FDA-Public Use
  Company Number: US-SA-2015SA191826

PATIENT
  Age: 36 Year
  Sex: Male

DRUGS (4)
  1. LEMTRADA [Suspect]
     Active Substance: ALEMTUZUMAB
     Indication: MULTIPLE SCLEROSIS
     Route: 041
     Dates: start: 20151116, end: 20151120
  2. DIPHENHYDRAMINE. [Concomitant]
     Active Substance: DIPHENHYDRAMINE
     Indication: PREMEDICATION
     Route: 042
  3. LEADER LORATADINE [Concomitant]
     Active Substance: LORATADINE
     Dosage: PATIENT WAS STARTED ON LORAMAX TO TAKE EVERY MORNINGBEFORE HE GOES IN TO RECEIVE HIS INFUSION
  4. DIPHENHYDRAMINE. [Concomitant]
     Active Substance: DIPHENHYDRAMINE
     Indication: PREMEDICATION
     Route: 048

REACTIONS (11)
  - Autonomic nervous system imbalance [Not Recovered/Not Resolved]
  - Loss of consciousness [Not Recovered/Not Resolved]
  - Asthenia [Not Recovered/Not Resolved]
  - Influenza like illness [Recovering/Resolving]
  - Chest pain [Recovered/Resolved]
  - Blood pressure increased [Not Recovered/Not Resolved]
  - Headache [Recovering/Resolving]
  - Pruritus [Recovered/Resolved]
  - Seizure [Not Recovered/Not Resolved]
  - Nerve compression [Not Recovered/Not Resolved]
  - Urinary incontinence [Unknown]

NARRATIVE: CASE EVENT DATE: 201511
